FAERS Safety Report 5851321-7 (Version None)
Quarter: 2008Q3

REPORT INFORMATION
  Report Type: 
  Country: None (occurrence: None)
  Receive Date: 20080820
  Receipt Date: 20080807
  Transmission Date: 20090109
  Serious: Yes (Other)
  Sender: FDA-Public Use
  Company Number: US-AVENTIS-200717519US

PATIENT
  Sex: Female

DRUGS (31)
  1. KETEK [Suspect]
     Dosage: FREQUENCY: AFTER MEALS
     Dates: start: 20040920, end: 20040929
  2. KETEK [Suspect]
     Dosage: FREQUENCY: AFTER MEALS
     Dates: start: 20040929, end: 20041008
  3. KETEK [Suspect]
     Indication: SINUSITIS
     Dosage: FREQUENCY: AFTER MEALS
     Dates: start: 20040920, end: 20040929
  4. KETEK [Suspect]
     Dosage: FREQUENCY: AFTER MEALS
     Dates: start: 20040929, end: 20041008
  5. KETEK [Suspect]
     Dosage: FREQUENCY: AFTER MEALS
     Dates: start: 20040920, end: 20040929
  6. KETEK [Suspect]
     Dosage: FREQUENCY: AFTER MEALS
     Dates: start: 20040929, end: 20041008
  7. METHYLPREDNISOLONE [Suspect]
     Dates: start: 20040920
  8. METHYLPREDNISOLONE [Suspect]
     Dates: start: 20040929
  9. SINGULAIR [Concomitant]
     Dosage: DOSE: UNK
     Dates: start: 20041201
  10. MIRALAX [Concomitant]
     Dosage: DOSE: UNK
     Dates: start: 20030101
  11. BELLADONNA [Concomitant]
     Dosage: DOSE: UNK
     Dates: start: 20030101
  12. ELAVIL [Concomitant]
     Dosage: DOSE: UNK
     Dates: start: 20030101
  13. ELAVIL [Concomitant]
     Dosage: DOSE: UNK
     Dates: start: 20030101
  14. YASIM [Concomitant]
     Dosage: DOSE: 1 TABLET
     Dates: start: 20040805, end: 20060826
  15. ZITHROMAX [Concomitant]
     Route: 048
     Dates: start: 20040910, end: 20040910
  16. ZITHROMAX [Concomitant]
     Route: 048
     Dates: start: 20040911
  17. DECONGESTANT [Concomitant]
     Dosage: DOSE: UNK
  18. ANALGESICS [Concomitant]
     Dosage: DOSE: UNK
  19. ADVIL [Concomitant]
     Dosage: DOSE: UNK
  20. TYLENOL SINUS                      /00908001/ [Concomitant]
     Dosage: DOSE: UNK
  21. SINUTABS [Concomitant]
     Dosage: DOSE: UNK
  22. ROBITUSSIN [Concomitant]
     Dosage: DOSE: UNK
  23. DELSYM [Concomitant]
     Dosage: DOSE: UNK
  24. VITAMINS NOS [Concomitant]
     Dosage: DOSE: UNK
  25. LYRICA [Concomitant]
     Dates: start: 20070201
  26. SKELAXIN [Concomitant]
     Indication: MUSCLE SPASMS
  27. VALIUM [Concomitant]
     Indication: PAIN
  28. VALIUM [Concomitant]
  29. PENICILLIN [Concomitant]
     Dosage: DOSE: UNK
  30. LEVAQUIN [Concomitant]
     Dosage: DOSE: UNK
  31. FLONASE [Concomitant]
     Dosage: DOSE: UNK

REACTIONS (14)
  - ASTHENIA [None]
  - FATIGUE [None]
  - HEPATIC ENZYME INCREASED [None]
  - HEPATITIS [None]
  - HEPATOTOXICITY [None]
  - HYPERHIDROSIS [None]
  - JAUNDICE [None]
  - LETHARGY [None]
  - MYOPIA [None]
  - NAUSEA [None]
  - PRESBYOPIA [None]
  - PYREXIA [None]
  - VISION BLURRED [None]
  - VOMITING [None]
